FAERS Safety Report 7824368-9 (Version None)
Quarter: 2011Q4

REPORT INFORMATION
  Report Type: 
  Country: None (occurrence: None)
  Receive Date: 20111019
  Receipt Date: 20111014
  Transmission Date: 20120403
  Serious: Yes (Hospitalization)
  Sender: FDA-Public Use
  Company Number: US-BRISTOL-MYERS SQUIBB COMPANY-15978364

PATIENT
  Age: 88 Year
  Sex: Male

DRUGS (12)
  1. ASPIRIN [Concomitant]
  2. COUMADIN [Suspect]
     Indication: ATRIAL FIBRILLATION
     Dosage: 2MGX5D, 1MGX2D
     Route: 048
     Dates: start: 20090101
  3. BISACODYL [Concomitant]
  4. MULTI-VITAMINS [Concomitant]
  5. METOPROLOL TARTRATE [Concomitant]
  6. CALCIUM + VITAMIN D [Concomitant]
  7. KEPPRA [Concomitant]
  8. AMIODARONE HCL [Concomitant]
  9. SIMVASTATIN [Concomitant]
  10. ZOLOFT [Concomitant]
  11. MAGNESIUM OXIDE [Concomitant]
  12. LEVOTHYROXINE SODIUM [Concomitant]

REACTIONS (3)
  - INTERNATIONAL NORMALISED RATIO INCREASED [None]
  - MALAISE [None]
  - CONFUSIONAL STATE [None]
